FAERS Safety Report 20548413 (Version 2)
Quarter: 2022Q1

REPORT INFORMATION
  Report Type: Spontaneous
  Country: BE (occurrence: BE)
  Receive Date: 20220303
  Receipt Date: 20220317
  Transmission Date: 20220423
  Serious: Yes (Hospitalization)
  Sender: FDA-Public Use
  Company Number: BE-TEVA-2022-BE-2011659

PATIENT
  Sex: Male

DRUGS (9)
  1. DOXORUBICIN [Suspect]
     Active Substance: DOXORUBICIN
     Indication: Diffuse large B-cell lymphoma
     Dosage: RECEIVED IN A R-CHOP REGIMEN COMPRISING OF RITUXIMAB, CYCLOPHOSPHAMIDE, DOXORUBICIN, VINCRISTINE ...
     Route: 065
  2. DOXORUBICIN [Suspect]
     Active Substance: DOXORUBICIN
     Indication: Peripheral T-cell lymphoma unspecified
     Dosage: RECEIVED IN A CHOP REGIMEN COMPRISING OF CYCLOPHOSPHAMIDE, DOXORUBICIN, VINCRISTINE AND PREDNISONE
     Route: 065
  3. VINCRISTINE [Suspect]
     Active Substance: VINCRISTINE
     Indication: Diffuse large B-cell lymphoma
     Dosage: RECEIVED IN A R-CHOP REGIMEN COMPRISING OF RITUXIMAB, CYCLOPHOSPHAMIDE, DOXORUBICIN, VINCRISTINE ...
     Route: 065
  4. VINCRISTINE [Suspect]
     Active Substance: VINCRISTINE
     Indication: Peripheral T-cell lymphoma unspecified
     Dosage: RECEIVED IN A CHOP REGIMEN COMPRISING OF CYCLOPHOSPHAMIDE, DOXORUBICIN, VINCRISTINE AND PREDNISONE
     Route: 065
  5. RITUXIMAB [Suspect]
     Active Substance: RITUXIMAB
     Indication: Diffuse large B-cell lymphoma
     Dosage: RECEIVED IN A R-CHOP REGIMEN COMPRISING OF RITUXIMAB, CYCLOPHOSPHAMIDE, DOXORUBICIN, VINCRISTINE ...
     Route: 065
  6. CYCLOPHOSPHAMIDE [Suspect]
     Active Substance: CYCLOPHOSPHAMIDE
     Indication: Diffuse large B-cell lymphoma
     Dosage: RECEIVED IN A R-CHOP REGIMEN COMPRISING OF RITUXIMAB, CYCLOPHOSPHAMIDE, DOXORUBICIN, VINCRISTINE ...
     Route: 065
  7. CYCLOPHOSPHAMIDE [Suspect]
     Active Substance: CYCLOPHOSPHAMIDE
     Indication: Peripheral T-cell lymphoma unspecified
     Dosage: RECEIVED IN A CHOP REGIMEN COMPRISING OF CYCLOPHOSPHAMIDE, DOXORUBICIN, VINCRISTINE AND PREDNISONE
     Route: 065
  8. PREDNISONE [Suspect]
     Active Substance: PREDNISONE
     Indication: Diffuse large B-cell lymphoma
     Dosage: RECEIVED IN A R-CHOP REGIMEN COMPRISING OF RITUXIMAB, CYCLOPHOSPHAMIDE, DOXORUBICIN, VINCRISTINE ...
     Route: 065
  9. PREDNISONE [Suspect]
     Active Substance: PREDNISONE
     Indication: Peripheral T-cell lymphoma unspecified
     Dosage: RECEIVED IN A CHOP REGIMEN COMPRISING OF CYCLOPHOSPHAMIDE, DOXORUBICIN, VINCRISTINE AND PREDNISONE
     Route: 065

REACTIONS (3)
  - Cytomegalovirus infection [Recovered/Resolved]
  - Cytomegalovirus infection reactivation [Recovering/Resolving]
  - Disseminated cytomegaloviral infection [Recovering/Resolving]
